FAERS Safety Report 8114211-5 (Version None)
Quarter: 2012Q1

REPORT INFORMATION
  Report Type: 
  Country: None (occurrence: None)
  Receive Date: 20120205
  Receipt Date: 20120127
  Transmission Date: 20120608
  Serious: Yes (Death)
  Sender: FDA-Public Use
  Company Number: CH-AMGEN-CHESP2012005989

PATIENT
  Age: 80 Year
  Sex: Male

DRUGS (3)
  1. PROLIA [Suspect]
     Indication: OSTEOPOROSIS POSTMENOPAUSAL
  2. PROLIA [Suspect]
     Indication: HYPERCALCAEMIA
     Dosage: 60 MG, UNK
     Route: 058
     Dates: start: 20110101
  3. VITAMIN D [Concomitant]

REACTIONS (2)
  - DEATH [None]
  - OFF LABEL USE [None]
